FAERS Safety Report 5138137-4 (Version None)
Quarter: 2006Q4

REPORT INFORMATION
  Report Type: 
  Country: None (occurrence: None)
  Receive Date: 20061030
  Receipt Date: 20060419
  Transmission Date: 20070319
  Serious: Yes (Other)
  Sender: FDA-Public Use
  Company Number: US-GLAXOSMITHKLINE-A0602704A

PATIENT
  Age: 74 Year
  Sex: Male

DRUGS (12)
  1. ADVAIR HFA [Suspect]
     Indication: ASTHMA
     Dosage: 1PUFF TWICE PER DAY
     Route: 055
  2. UNSPECIFIED MEDICATION [Concomitant]
     Indication: GOUT
  3. LASIX [Concomitant]
  4. PREDNISONE TAB [Concomitant]
  5. PAIN MEDICATION [Concomitant]
     Indication: ARTHRITIS
  6. CARDURA [Concomitant]
  7. ALLOPURINOL [Concomitant]
  8. SYNTHROID [Concomitant]
  9. FLOMAX [Concomitant]
  10. ALBUTEROL [Concomitant]
  11. NOSTRILLA [Concomitant]
  12. NABUMETONE [Concomitant]

REACTIONS (3)
  - ASTHMA [None]
  - DYSPNOEA [None]
  - PHARMACEUTICAL PRODUCT COMPLAINT [None]
